FAERS Safety Report 15180673 (Version 1)
Quarter: 2018Q3

REPORT INFORMATION
  Report Type: Spontaneous
  Country: DK (occurrence: DK)
  Receive Date: 20180723
  Receipt Date: 20180723
  Transmission Date: 20181010
  Serious: Yes (Life-Threatening, Hospitalization)
  Sender: FDA-Public Use
  Company Number: DK-009507513-1807DNK006506

PATIENT
  Age: 63 Year
  Sex: Male
  Weight: 105 kg

DRUGS (5)
  1. PANTOLOC [Concomitant]
     Active Substance: PANTOPRAZOLE SODIUM
     Indication: GASTRIC ULCER
     Dosage: STRENGTH: 20 MG
     Route: 048
     Dates: start: 2016
  2. SIMVASTATIN KRKA [Concomitant]
     Active Substance: SIMVASTATIN
     Indication: HYPERCHOLESTEROLAEMIA
     Dosage: STRENGTH: 40 MG
     Route: 048
     Dates: start: 20130925
  3. ENALAPRIL SANDOZ [Concomitant]
     Active Substance: ENALAPRIL
     Indication: HYPERTENSION
     Dosage: STRENGTH: 10 MG
     Route: 048
     Dates: start: 20140131
  4. JANUMET [Suspect]
     Active Substance: METFORMIN HYDROCHLORIDE\SITAGLIPTIN PHOSPHATE
     Indication: TYPE 2 DIABETES MELLITUS
     Dosage: STRENGTH: 1000 + 50 MG
     Route: 048
     Dates: start: 20140319, end: 20180607
  5. AMARYL [Concomitant]
     Active Substance: GLIMEPIRIDE
     Indication: TYPE 2 DIABETES MELLITUS
     Dosage: STRENGTH: 2 MG
     Route: 048
     Dates: start: 20130925

REACTIONS (15)
  - Hyperkalaemia [Unknown]
  - Pancreatitis [Not Recovered/Not Resolved]
  - Abdominal pain [Not Recovered/Not Resolved]
  - Ascites [Unknown]
  - Mesenteric vein thrombosis [Unknown]
  - Abdominal distension [Not Recovered/Not Resolved]
  - Atrioventricular block complete [Recovered/Resolved]
  - Splenic vein thrombosis [Unknown]
  - Atrial fibrillation [Unknown]
  - Amylase increased [Unknown]
  - Hyperglycaemia [Recovered/Resolved]
  - Portal vein thrombosis [Unknown]
  - Anuria [Unknown]
  - Pancreatitis necrotising [Unknown]
  - Lactic acidosis [Unknown]

NARRATIVE: CASE EVENT DATE: 201806
